FAERS Safety Report 6047933-0 (Version None)
Quarter: 2009Q1

REPORT INFORMATION
  Report Type: 
  Country: None (occurrence: None)
  Receive Date: 20090123
  Receipt Date: 20090114
  Transmission Date: 20090719
  Serious: Yes (Death)
  Sender: FDA-Public Use
  Company Number: JP-NOVOPROD-282850

PATIENT
  Age: 54 Year
  Sex: Male
  Weight: 58 kg

DRUGS (8)
  1. LEVEMIR [Suspect]
     Indication: TYPE 1 DIABETES MELLITUS
     Dosage: 6 U, QD
     Route: 058
     Dates: start: 20080121, end: 20081101
  2. NOVORAPID CHU FLEXPEN [Suspect]
     Indication: TYPE 1 DIABETES MELLITUS
     Dosage: 13 U, QD
     Route: 058
     Dates: start: 20081017, end: 20081101
  3. OMEPRAZOLE [Concomitant]
     Dosage: 20 MG, QD
     Route: 048
     Dates: start: 20081006, end: 20081101
  4. POLAPREZINC [Concomitant]
     Dosage: 150 MG, QD
     Route: 048
     Dates: start: 20061013, end: 20081101
  5. EPALRESTAT [Concomitant]
     Dosage: 150 MG, QD
     Route: 048
     Dates: start: 20050629, end: 20081101
  6. MECOBALAMIN [Concomitant]
     Dosage: 1.5 MG, QD
     Route: 048
     Dates: start: 20050714, end: 20081101
  7. OLMESARTAN MEDOXOMIL [Concomitant]
     Dosage: 20 MG, QD
     Route: 048
     Dates: start: 20060602, end: 20081101
  8. TRICHLORMETHIAZIDE [Concomitant]
     Dosage: .5 MG, QD
     Route: 048
     Dates: start: 20080201, end: 20081101

REACTIONS (2)
  - CEREBRAL HAEMORRHAGE [None]
  - HYPOGLYCAEMIA [None]
